FAERS Safety Report 13796504 (Version 1)
Quarter: 2017Q3

REPORT INFORMATION
  Report Type: Report from Study
  Country: US (occurrence: US)
  Receive Date: 20170726
  Receipt Date: 20170726
  Transmission Date: 20171127
  Serious: No
  Sender: FDA-Public Use
  Company Number: US-AMGEN-USASL2017031838

PATIENT
  Age: 83 Year
  Sex: Female

DRUGS (1)
  1. KYPROLIS [Suspect]
     Active Substance: CARFILZOMIB
     Indication: PLASMA CELL MYELOMA
     Dosage: UNK
     Route: 065
     Dates: start: 20170221, end: 2017

REACTIONS (6)
  - Confusional state [Unknown]
  - Diarrhoea [Unknown]
  - Fall [Unknown]
  - Dizziness [Unknown]
  - Laryngitis [Unknown]
  - Malaise [Unknown]

NARRATIVE: CASE EVENT DATE: 2017
